FAERS Safety Report 18937564 (Version 3)
Quarter: 2021Q4

REPORT INFORMATION
  Report Type: Report from Study
  Country: FR (occurrence: FR)
  Receive Date: 20210225
  Receipt Date: 20211102
  Transmission Date: 20220303
  Serious: Yes (Hospitalization)
  Sender: FDA-Public Use
  Company Number: FR-IPSEN GROUP, RESEARCH AND DEVELOPMENT-2021-03731

PATIENT
  Age: 9 Year
  Sex: Female
  Weight: 21 kg

DRUGS (4)
  1. INCRELEX [Suspect]
     Active Substance: MECASERMIN
     Indication: Severe primary insulin like growth factor-1 deficiency
     Dosage: 40 UG/KG (0.04 MG/KG)
     Route: 058
     Dates: start: 20170411
  2. INCRELEX [Suspect]
     Active Substance: MECASERMIN
     Indication: Laron syndrome
     Dosage: 40 UG/KG (0.04 MG/KG)
     Route: 065
     Dates: start: 20170603, end: 20170829
  3. INCRELEX [Suspect]
     Active Substance: MECASERMIN
     Dosage: 100 UG/KG (0.10 MG/KG)
     Route: 065
     Dates: start: 20170829, end: 20171215
  4. INCRELEX [Suspect]
     Active Substance: MECASERMIN
     Dosage: 120 UG/KG (0.12 MG/KG)
     Route: 065
     Dates: start: 20180207

REACTIONS (6)
  - Hypoglycaemia [Recovered/Resolved]
  - Seizure [Recovered/Resolved]
  - Epilepsy [Recovered/Resolved]
  - Product use issue [Unknown]
  - Product dose omission issue [Unknown]
  - Product dose omission issue [Unknown]

NARRATIVE: CASE EVENT DATE: 20200101
